FAERS Safety Report 13516776 (Version 19)
Quarter: 2018Q2

REPORT INFORMATION
  Report Type: Report from Study
  Country: US (occurrence: US)
  Receive Date: 20170505
  Receipt Date: 20180514
  Transmission Date: 20180711
  Serious: Yes (Hospitalization, Other)
  Sender: FDA-Public Use
  Company Number: US-GILEAD-2017-0271177

PATIENT
  Age: 69 Year
  Sex: Female

DRUGS (7)
  1. ORENITRAM [Suspect]
     Active Substance: TREPROSTINIL
     Dosage: 2 MG, BID
     Route: 065
  2. ORENITRAM [Suspect]
     Active Substance: TREPROSTINIL
     Indication: PRODUCT USED FOR UNKNOWN INDICATION
     Dosage: 1.375 MG, UNK
     Route: 065
  3. AMBRISENTAN [Suspect]
     Active Substance: AMBRISENTAN
     Indication: PRODUCT USED FOR UNKNOWN INDICATION
     Dosage: 10 MG, QD
     Route: 065
     Dates: start: 20140804
  4. ADCIRCA [Suspect]
     Active Substance: TADALAFIL
     Indication: PRODUCT USED FOR UNKNOWN INDICATION
     Dosage: UNK
     Route: 065
  5. ORENITRAM [Suspect]
     Active Substance: TREPROSTINIL
     Dosage: 2.175 MG, UNK
     Route: 065
  6. OXYGEN. [Concomitant]
     Active Substance: OXYGEN
  7. ORENITRAM [Suspect]
     Active Substance: TREPROSTINIL
     Dosage: 1.5 MG, ONCE
     Route: 065

REACTIONS (38)
  - Irritable bowel syndrome [Unknown]
  - Blood pressure fluctuation [Not Recovered/Not Resolved]
  - Respiratory disorder [Unknown]
  - Diarrhoea [Recovering/Resolving]
  - Oxygen saturation decreased [Unknown]
  - Nasal dryness [Unknown]
  - Respiratory tract infection [Unknown]
  - Muscle spasms [Not Recovered/Not Resolved]
  - Hot flush [Unknown]
  - Wheezing [Unknown]
  - Hypotension [Not Recovered/Not Resolved]
  - Epistaxis [Not Recovered/Not Resolved]
  - Pruritus [Unknown]
  - Abdominal discomfort [Unknown]
  - Urticaria [Not Recovered/Not Resolved]
  - Rash macular [Unknown]
  - Palpitations [Unknown]
  - Oedema peripheral [Not Recovered/Not Resolved]
  - Dyschezia [Unknown]
  - Dizziness [Not Recovered/Not Resolved]
  - Diverticulitis [Unknown]
  - Heart rate increased [Recovering/Resolving]
  - Chest discomfort [Not Recovered/Not Resolved]
  - Respiration abnormal [Not Recovered/Not Resolved]
  - Chills [Unknown]
  - Somnolence [Unknown]
  - Bite [Not Recovered/Not Resolved]
  - Feeling hot [Not Recovered/Not Resolved]
  - Peripheral coldness [Not Recovered/Not Resolved]
  - Ill-defined disorder [Unknown]
  - Peripheral swelling [Unknown]
  - Fluid retention [Recovered/Resolved]
  - Dyspnoea exertional [Not Recovered/Not Resolved]
  - Dyspnoea [Not Recovered/Not Resolved]
  - Heart rate irregular [Not Recovered/Not Resolved]
  - Ocular hyperaemia [Unknown]
  - Swelling [Not Recovered/Not Resolved]
  - Flushing [Unknown]

NARRATIVE: CASE EVENT DATE: 201707
